FAERS Safety Report 15127889 (Version 4)
Quarter: 2019Q2

REPORT INFORMATION
  Report Type: Spontaneous
  Country: US (occurrence: US)
  Receive Date: 20180710
  Receipt Date: 20190416
  Transmission Date: 20190711
  Serious: Yes (Hospitalization)
  Sender: FDA-Public Use
  Company Number: US-ACTELION-A-US2018-174949

PATIENT
  Sex: Female
  Weight: 133.79 kg

DRUGS (2)
  1. REVATIO [Concomitant]
     Active Substance: SILDENAFIL CITRATE
  2. TRACLEER [Suspect]
     Active Substance: BOSENTAN
     Indication: PULMONARY ARTERIAL HYPERTENSION
     Dosage: 125 MG, BID
     Route: 048

REACTIONS (7)
  - Haematoma [Unknown]
  - Haemoptysis [Unknown]
  - Catheterisation cardiac [Unknown]
  - Coagulopathy [Unknown]
  - Peripheral swelling [Unknown]
  - Skin discolouration [Unknown]
  - Hospitalisation [Unknown]
